FAERS Safety Report 4443893-4 (Version None)
Quarter: 2004Q3

REPORT INFORMATION
  Report Type: 
  Country: None (occurrence: None)
  Receive Date: 20040729
  Receipt Date: 20040409
  Transmission Date: 20050211
  Serious: Yes (Hospitalization)
  Sender: FDA-Public Use
  Company Number: US-JNJFOC-20040402377

PATIENT
  Age: 7 Decade
  Sex: Female

DRUGS (2)
  1. RISPERDAL [Suspect]
     Dosage: 2 MG, ORAL
     Route: 048
     Dates: start: 20040301
  2. ZOLOFT [Concomitant]

REACTIONS (1)
  - THROMBOCYTOPENIA [None]
